FAERS Safety Report 4488315-2 (Version None)
Quarter: 2004Q4

REPORT INFORMATION
  Report Type: 
  Country: None (occurrence: None)
  Receive Date: 20041028
  Receipt Date: 20040716
  Transmission Date: 20050328
  Serious: Yes (Other)
  Sender: FDA-Public Use
  Company Number: PHBS2004JP09632

PATIENT
  Age: 84 Year
  Sex: Male
  Weight: 63 kg

DRUGS (6)
  1. LUDIOMIL [Suspect]
     Indication: DEPRESSION
     Dosage: 50 MG/D
     Route: 048
     Dates: start: 20040706, end: 20040715
  2. LOXONIN [Concomitant]
     Indication: PAIN
     Dosage: 120 MG/D
     Route: 048
     Dates: start: 20040706, end: 20040715
  3. MECOBALAMIN [Concomitant]
     Indication: HYPOAESTHESIA
     Dosage: 1 MG/D
     Route: 048
     Dates: start: 20040706, end: 20040715
  4. MUCOSTA [Concomitant]
     Dosage: 200 MG/D
     Route: 048
     Dates: start: 20040706, end: 20040715
  5. MARZULENE S [Concomitant]
     Dosage: 1 G/D
     Route: 048
     Dates: start: 20040706, end: 20040715
  6. MAGNESIUM OXIDE [Concomitant]
     Dosage: 1 G/D
     Route: 048
     Dates: start: 20040707, end: 20040721

REACTIONS (12)
  - ABNORMAL BEHAVIOUR [None]
  - AMNESIA [None]
  - AUTONOMIC NERVOUS SYSTEM IMBALANCE [None]
  - BLOOD SODIUM DECREASED [None]
  - CONTUSION [None]
  - DIZZINESS [None]
  - FALL [None]
  - GLYCOSYLATED HAEMOGLOBIN INCREASED [None]
  - INAPPROPRIATE ANTIDIURETIC HORMONE SECRETION [None]
  - MALAISE [None]
  - MEMORY IMPAIRMENT [None]
  - URINE OUTPUT INCREASED [None]
